FAERS Safety Report 4680086-X (Version None)
Quarter: 2005Q2

REPORT INFORMATION
  Report Type: 
  Country: None (occurrence: None)
  Receive Date: 20050531
  Receipt Date: 20050516
  Transmission Date: 20051028
  Serious: Yes (Hospitalization)
  Sender: FDA-Public Use
  Company Number: DSA_26443_2005

PATIENT
  Age: 84 Year
  Sex: Male

DRUGS (7)
  1. TEMESTA [Suspect]
     Dosage: 2 MG Q DAY PO
     Route: 048
     Dates: end: 20050101
  2. JOSIR [Concomitant]
  3. COTAREG ^NOVARTIS^ [Concomitant]
  4. ALUMINIUM HYDROXIDE W/ MAGNESIUM HYDROXIDE [Concomitant]
  5. ZOLOFT [Concomitant]
  6. LANZOR [Concomitant]
  7. AMIODARONE HYDROCHLORIDE [Concomitant]

REACTIONS (9)
  - BLADDER DISTENSION [None]
  - BLOOD PRESSURE INCREASED [None]
  - BODY TEMPERATURE DECREASED [None]
  - CEREBRAL ATROPHY [None]
  - CONFUSIONAL STATE [None]
  - DISORIENTATION [None]
  - FALL [None]
  - RHABDOMYOLYSIS [None]
  - VISUAL DISTURBANCE [None]
